FAERS Safety Report 15431067 (Version 1)
Quarter: 2018Q3

REPORT INFORMATION
  Report Type: Spontaneous
  Country: US (occurrence: US)
  Receive Date: 20180926
  Receipt Date: 20180926
  Transmission Date: 20181010
  Serious: Yes (Other)
  Sender: FDA-Public Use
  Company Number: US-INDIVIOR LIMITED-INDV-112465-2018

PATIENT
  Age: 38 Year
  Sex: Female

DRUGS (4)
  1. HYDROCODONE [Suspect]
     Active Substance: HYDROCODONE
     Indication: PRODUCT USED FOR UNKNOWN INDICATION
     Dosage: UNK
     Route: 065
  2. SUBOXONE [Suspect]
     Active Substance: BUPRENORPHINE HYDROCHLORIDE\NALOXONE HYDROCHLORIDE
     Indication: DRUG DEPENDENCE
     Dosage: UNK
     Route: 065
     Dates: start: 20180709, end: 20180709
  3. HYDROCODONE [Suspect]
     Active Substance: HYDROCODONE
     Dosage: UNK (GIVEN 8 HOURS BEFORE TAKING SUBOXONE)
     Route: 065
     Dates: start: 201807
  4. SEROQUEL [Concomitant]
     Active Substance: QUETIAPINE FUMARATE
     Indication: PRODUCT USED FOR UNKNOWN INDICATION
     Dosage: UNK
     Route: 065
     Dates: end: 201807

REACTIONS (10)
  - Loss of consciousness [Recovering/Resolving]
  - Fatigue [Recovering/Resolving]
  - Somnolence [Recovering/Resolving]
  - Dizziness [Recovering/Resolving]
  - Intentional underdose [Recovered/Resolved]
  - Malaise [Recovering/Resolving]
  - Nausea [Recovering/Resolving]
  - Adverse event [Recovering/Resolving]
  - Vomiting [Recovering/Resolving]
  - Hypersensitivity [Unknown]

NARRATIVE: CASE EVENT DATE: 20180709
